FAERS Safety Report 4276675-7 (Version None)
Quarter: 2004Q1

REPORT INFORMATION
  Report Type: 
  Country: None (occurrence: None)
  Receive Date: 20040120
  Receipt Date: 20040106
  Transmission Date: 20041129
  Serious: Yes (Hospitalization)
  Sender: FDA-Public Use
  Company Number: 04P-163-0246493-00

PATIENT
  Age: 52 Year
  Sex: Female

DRUGS (15)
  1. GENGRAF [Suspect]
     Indication: IMMUNOSUPPRESSION
     Dosage: 150 MG, 2 IN 1 D
  2. METOCLOPRAMIDE [Suspect]
  3. AZATHIOPRINE [Concomitant]
  4. PREDNISONE [Concomitant]
  5. BACTRIM [Concomitant]
  6. GANCICLOVIR [Concomitant]
  7. NYSTATIN [Concomitant]
  8. CLARITHROMYCIN [Concomitant]
  9. FUROSEMIDE [Concomitant]
  10. CISAPRIDE [Concomitant]
  11. NIZATIDINE [Concomitant]
  12. FOLIC ACID [Concomitant]
  13. POTASSIUM CHLORIDE [Concomitant]
  14. LOSARTAN [Concomitant]
  15. FUROSEMIDE [Concomitant]

REACTIONS (14)
  - ASTHENIA [None]
  - BLINDNESS CORTICAL [None]
  - COMA [None]
  - CONFUSIONAL STATE [None]
  - CONVULSION [None]
  - DIZZINESS [None]
  - DRUG INTERACTION [None]
  - HAEMOGLOBIN DECREASED [None]
  - HEADACHE [None]
  - NEUROTOXICITY [None]
  - STARING [None]
  - TREMOR [None]
  - URINARY INCONTINENCE [None]
  - VISION BLURRED [None]
